FAERS Safety Report 7932721-8 (Version None)
Quarter: 2011Q4

REPORT INFORMATION
  Report Type: 
  Country: None (occurrence: None)
  Receive Date: 20111122
  Receipt Date: 20111114
  Transmission Date: 20120403
  Serious: Yes (Other)
  Sender: FDA-Public Use
  Company Number: US-JNJFOC-20111002635

PATIENT
  Sex: Female
  Weight: 56.7 kg

DRUGS (14)
  1. LEVAQUIN [Suspect]
     Indication: STATUS ASTHMATICUS
     Route: 048
     Dates: start: 20080218
  2. LEVAQUIN [Suspect]
     Indication: PNEUMONIA BACTERIAL
     Route: 048
     Dates: start: 20081212, end: 20081223
  3. LEVAQUIN [Suspect]
     Route: 048
     Dates: start: 20080218
  4. SPIRIVA [Concomitant]
     Indication: ASTHMA
     Route: 055
     Dates: start: 20090101
  5. ALBUTEROL [Concomitant]
     Indication: ASTHMA
     Route: 055
     Dates: start: 19910101
  6. FOLIC ACID [Concomitant]
     Indication: VITAMIN SUPPLEMENTATION
     Route: 048
     Dates: start: 20080101
  7. KLOR-CON [Concomitant]
     Indication: MINERAL SUPPLEMENTATION
     Route: 048
  8. LEVAQUIN [Suspect]
     Indication: BRONCHITIS
     Route: 048
     Dates: start: 20081212, end: 20081223
  9. LEVAQUIN [Suspect]
     Route: 048
     Dates: start: 20080218
  10. LEVAQUIN [Suspect]
     Route: 048
     Dates: start: 20081212, end: 20081223
  11. VITAMIN D W/VITAMIN E [Concomitant]
     Indication: VITAMIN SUPPLEMENTATION
     Route: 048
  12. FISH OIL [Concomitant]
     Indication: PRODUCT USED FOR UNKNOWN INDICATION
     Route: 048
  13. CRESTOR [Concomitant]
     Indication: BLOOD CHOLESTEROL INCREASED
     Route: 048
     Dates: start: 20110801
  14. ADVAIR DISKUS 100/50 [Concomitant]
     Indication: ASTHMA
     Route: 055
     Dates: start: 20070101

REACTIONS (4)
  - TENDON RUPTURE [None]
  - INAPPROPRIATE SCHEDULE OF DRUG ADMINISTRATION [None]
  - INFLAMMATION [None]
  - TENDON PAIN [None]
